FAERS Safety Report 8404743 (Version 7)
Quarter: 2017Q1

REPORT INFORMATION
  Report Type: Report from Study
  Country: DE (occurrence: DE)
  Receive Date: 20120214
  Receipt Date: 20170224
  Transmission Date: 20170429
  Serious: Yes (Hospitalization, Other)
  Sender: FDA-Public Use
  Company Number: DE-BAYER-2012-006725

PATIENT
  Age: 72 Year
  Sex: Female
  Weight: 76 kg

DRUGS (9)
  1. SORAFENIB (RAF KINASE INHIBITOR) [Suspect]
     Active Substance: SORAFENIB
     Indication: INTRAOCULAR MELANOMA
     Dosage: 400 MG, BID
     Route: 048
     Dates: start: 20120126
  2. BLINDED SORAFENIB (RAF KINASE INHIBITOR) [Suspect]
     Active Substance: SORAFENIB
     Indication: METASTATIC OCULAR MELANOMA
     Dosage: UNK
     Route: 048
     Dates: start: 20120405
  3. SORAFENIB (RAF KINASE INHIBITOR) [Suspect]
     Active Substance: SORAFENIB
     Indication: INTRAOCULAR MELANOMA
     Dosage: UNK
     Route: 048
     Dates: end: 20120207
  4. SORAFENIB (RAF KINASE INHIBITOR) [Suspect]
     Active Substance: SORAFENIB
     Indication: INTRAOCULAR MELANOMA
     Dosage: UNK
     Route: 048
     Dates: start: 20121207
  5. PREDNISOLON [Concomitant]
     Active Substance: PREDNISOLONE
     Dosage: 100 MG, 1-3 TIMES A DAY
  6. SORAFENIB (RAF KINASE INHIBITOR) [Suspect]
     Active Substance: SORAFENIB
     Indication: INTRAOCULAR MELANOMA
     Dosage: 800 MG, QD
     Route: 048
     Dates: start: 20120107, end: 20120118
  7. BLINDED SORAFENIB (RAF KINASE INHIBITOR) [Suspect]
     Active Substance: SORAFENIB
     Indication: METASTATIC OCULAR MELANOMA
     Dosage: 200 MG, BID
     Route: 048
     Dates: start: 20120201
  8. SORAFENIB (RAF KINASE INHIBITOR) [Suspect]
     Active Substance: SORAFENIB
     Indication: INTRAOCULAR MELANOMA
     Dosage: 400 MG, QD
     Route: 048
     Dates: start: 20120210
  9. BLINDED SORAFENIB (RAF KINASE INHIBITOR) [Suspect]
     Active Substance: SORAFENIB
     Indication: METASTATIC OCULAR MELANOMA
     Dosage: 800 MG, QD
     Route: 048
     Dates: start: 20120107

REACTIONS (5)
  - Rash [Recovered/Resolved with Sequelae]
  - Chills [Recovered/Resolved with Sequelae]
  - Seizure [Recovered/Resolved with Sequelae]
  - Hypertensive crisis [Recovered/Resolved with Sequelae]
  - Anxiety disorder [None]

NARRATIVE: CASE EVENT DATE: 20120120
